FAERS Safety Report 12783139 (Version 1)
Quarter: 2016Q3

REPORT INFORMATION
  Report Type: Spontaneous
  Country: US (occurrence: US)
  Receive Date: 20160927
  Receipt Date: 20160927
  Transmission Date: 20161109
  Serious: Yes (Hospitalization, Other)
  Sender: FDA-Public Use
  Company Number: US-BEH-PAGL/01/01/USA

PATIENT
  Age: 79 Year
  Sex: Female
  Weight: 70.3 kg

DRUGS (6)
  1. MESTINON [Concomitant]
     Active Substance: PYRIDOSTIGMINE BROMIDE
     Dosage: DAILY DOSE QUANTITY: 60, DAILY DOSE UNIT: MG
     Route: 048
  2. PANGLOBULIN [Suspect]
     Active Substance: HUMAN IMMUNOGLOBULIN G
     Indication: MYASTHENIA GRAVIS
     Dosage: DAILY DOSE QUANTITY: 500, DAILY DOSE UNIT: MG
     Route: 042
     Dates: start: 20010611, end: 20010615
  3. PREDNISONE. [Concomitant]
     Active Substance: PREDNISONE
  4. MONOPRIL [Concomitant]
     Active Substance: FOSINOPRIL SODIUM
     Dosage: DAILY DOSE QUANTITY: 20, DAILY DOSE UNIT: MG
     Route: 048
  5. PANGLOBULIN [Suspect]
     Active Substance: HUMAN IMMUNOGLOBULIN G
  6. PANGLOBULIN [Suspect]
     Active Substance: HUMAN IMMUNOGLOBULIN G

REACTIONS (4)
  - Hepatitis [Unknown]
  - Renal failure [Not Recovered/Not Resolved]
  - Asthenia [Unknown]
  - Vomiting [Unknown]

NARRATIVE: CASE EVENT DATE: 20010618
